FAERS Safety Report 8362823-6 (Version None)
Quarter: 2012Q2

REPORT INFORMATION
  Report Type: 
  Country: None (occurrence: None)
  Receive Date: 20120516
  Receipt Date: 20120511
  Transmission Date: 20120825
  Serious: Yes (Other)
  Sender: FDA-Public Use
  Company Number: PHHY2012JP034579

PATIENT

DRUGS (1)
  1. NEORAL [Suspect]
     Dosage: 150 MG, DAILY
     Route: 048

REACTIONS (1)
  - GASTROINTESTINAL PERFORATION [None]
